FAERS Safety Report 7014681-X (Version None)
Quarter: 2010Q3

REPORT INFORMATION
  Report Type: 
  Country: None (occurrence: None)
  Receive Date: 20100922
  Receipt Date: 20100911
  Transmission Date: 20110219
  Serious: Yes (Hospitalization)
  Sender: FDA-Public Use
  Company Number: UTC-001430

PATIENT
  Age: 37 Year
  Sex: Female
  Weight: 92.7 kg

DRUGS (13)
  1. REMODULIN [Suspect]
     Indication: PULMONARY ARTERIAL HYPERTENSION
     Dosage: 14.4 UG/KG (0.01 UG/KG, 1 IN 1 MIN), SUBCUTANEOUS
     Route: 058
     Dates: start: 20100812
  2. TRAMADOL HCL [Concomitant]
  3. LISINOPRIL [Concomitant]
  4. ZOLOFT [Concomitant]
  5. FUROSEMIDE [Concomitant]
  6. LANTUS [Concomitant]
  7. CLEMASTINE FUMARATE [Concomitant]
  8. OMEPRAZOLE [Concomitant]
  9. ALBUTEROL [Concomitant]
  10. FLOVENT [Concomitant]
  11. AMITRIPTYLINE HYDROCHLORIDE [Concomitant]
  12. PROAIR (FLUTICASONE PROPIONATE) [Concomitant]
  13. FERROUS SULFATE TAB [Concomitant]

REACTIONS (1)
  - ANAEMIA [None]
